FAERS Safety Report 8613638-2 (Version None)
Quarter: 2012Q3

REPORT INFORMATION
  Report Type: 
  Country: None (occurrence: None)
  Receive Date: 20120823
  Receipt Date: 20120809
  Transmission Date: 20120928
  Serious: Yes (Life-Threatening, Hospitalization)
  Sender: FDA-Public Use
  Company Number: JP-MERCK-1206USA03570

PATIENT

DRUGS (8)
  1. RABEPRAZOLE SODIUM [Concomitant]
     Dosage: UNK
     Dates: start: 20101206
  2. ACTOS [Concomitant]
     Dosage: UNK
     Dates: start: 20110308, end: 20110524
  3. AMARYL [Concomitant]
     Dosage: UNK
     Dates: start: 20101206, end: 20110404
  4. SITAGLIPTIN PHOSPHATE [Suspect]
     Indication: TYPE 2 DIABETES MELLITUS
     Dosage: 50 MG, QD
     Route: 048
     Dates: start: 20101206
  5. PLETAL [Concomitant]
     Dosage: UNK
     Dates: start: 20101206, end: 20110524
  6. METFORMIN HCL [Concomitant]
     Dosage: UNK
     Dates: start: 20101206
  7. CRESTOR [Concomitant]
     Dosage: UNK
     Dates: start: 20110210
  8. AMARYL [Concomitant]
     Dosage: 2 MG, UNK
     Dates: start: 20110405

REACTIONS (2)
  - CARDIAC FAILURE [None]
  - HYPERTROPHIC CARDIOMYOPATHY [None]
